FAERS Safety Report 12131299 (Version 1)
Quarter: 2016Q1

REPORT INFORMATION
  Report Type: Spontaneous
  Country: ES (occurrence: ES)
  Receive Date: 20160301
  Receipt Date: 20160301
  Transmission Date: 20160526
  Serious: Yes (Other)
  Sender: FDA-Public Use
  Company Number: ES-TEVA-637613ISR

PATIENT
  Age: 47 Year
  Sex: Female

DRUGS (1)
  1. COPAXONE [Suspect]
     Active Substance: GLATIRAMER ACETATE
     Indication: MULTIPLE SCLEROSIS
     Dosage: COPAXONE 40 MG/ML
     Route: 058
     Dates: start: 20151023, end: 20160203

REACTIONS (7)
  - Injection site vasculitis [Not Recovered/Not Resolved]
  - Panniculitis [Not Recovered/Not Resolved]
  - Rash [Unknown]
  - Cellulitis [Unknown]
  - Skin ulcer [Unknown]
  - Skin lesion [Unknown]
  - Therapy change [Unknown]

NARRATIVE: CASE EVENT DATE: 20151023
